FAERS Safety Report 16229657 (Version 1)
Quarter: 2019Q2

REPORT INFORMATION
  Report Type: Spontaneous
  Country: CA (occurrence: CA)
  Receive Date: 20190423
  Receipt Date: 20190423
  Transmission Date: 20190711
  Serious: Yes (Hospitalization)
  Sender: FDA-Public Use
  Company Number: CA-PFIZER INC-2019167278

PATIENT
  Age: 15 Year
  Sex: Female

DRUGS (4)
  1. COLACE [Suspect]
     Active Substance: DOCUSATE SODIUM
     Indication: OVERDOSE
     Dosage: UNK
     Route: 065
  2. GRAVOL GINGER NIGHTTIME [Suspect]
     Active Substance: GINGER\MELATONIN
     Indication: OVERDOSE
     Dosage: 20 DF(LOZENGE), UNK
     Route: 065
  3. IBUPROFEN. [Suspect]
     Active Substance: IBUPROFEN
     Indication: OVERDOSE
     Dosage: 4000 MG, UNK
     Route: 065
  4. ACETAMINOPHEN. [Suspect]
     Active Substance: ACETAMINOPHEN
     Indication: OVERDOSE
     Dosage: 5000 MG, UNK
     Route: 065

REACTIONS (4)
  - Agitation [Recovered/Resolved]
  - Intentional overdose [Recovered/Resolved]
  - Blood pressure increased [Recovered/Resolved]
  - Somnolence [Recovered/Resolved]
